FAERS Safety Report 4706172-3 (Version None)
Quarter: 2005Q2

REPORT INFORMATION
  Report Type: 
  Country: None (occurrence: None)
  Receive Date: 20050204
  Receipt Date: 20050204
  Transmission Date: 20051028
  Serious: No
  Sender: FDA-Public Use
  Company Number: None

PATIENT
  Sex: Female

DRUGS (1)
  1. CLONAZEPAM [Suspect]
     Dosage: INSOMNIA 780.50

REACTIONS (3)
  - DRUG HYPERSENSITIVITY [None]
  - THERAPEUTIC RESPONSE UNEXPECTED WITH DRUG SUBSTITUTION [None]
  - URTICARIA [None]
